FAERS Safety Report 7591132-8 (Version None)
Quarter: 2011Q3

REPORT INFORMATION
  Report Type: 
  Country: None (occurrence: None)
  Receive Date: 20110705
  Receipt Date: 20110624
  Transmission Date: 20111222
  Serious: Yes (Other)
  Sender: FDA-Public Use
  Company Number: FR-ASTRAZENECA-2011SE37156

PATIENT
  Sex: Male

DRUGS (4)
  1. JANUMET [Concomitant]
     Indication: TYPE 2 DIABETES MELLITUS
  2. CRESTOR [Suspect]
     Indication: DYSLIPIDAEMIA
     Route: 048
     Dates: start: 20110617, end: 20110617
  3. CRESTOR [Suspect]
     Route: 048
     Dates: start: 20080101, end: 20110601
  4. CO-KENZEN [Concomitant]
     Indication: HYPERTENSION

REACTIONS (2)
  - EXTRASYSTOLES [None]
  - ARRHYTHMIA [None]
